FAERS Safety Report 20201095 (Version 1)
Quarter: 2021Q4

REPORT INFORMATION
  Report Type: Spontaneous
  Country: US (occurrence: US)
  Receive Date: 20211217
  Receipt Date: 20211217
  Transmission Date: 20220303
  Serious: Yes (Other)
  Sender: FDA-Public Use
  Company Number: US-PAIPHARMA-2021-US-002022

PATIENT
  Age: 72 Year
  Sex: Male
  Weight: 58.06 kg

DRUGS (8)
  1. CHLORHEXIDINE GLUCONATE [Suspect]
     Active Substance: CHLORHEXIDINE GLUCONATE
     Indication: Product used for unknown indication
     Dosage: RINSED 2-3 TIMES DAILY
     Route: 048
     Dates: start: 20201224, end: 20201228
  2. VITAMIN C [Concomitant]
     Active Substance: ASCORBIC ACID
  3. VITAMIN D3 [Concomitant]
     Active Substance: CHOLECALCIFEROL
  4. CALCIUM [Concomitant]
     Active Substance: CALCIUM
  5. SELENIUM [Concomitant]
     Active Substance: SELENIUM
  6. ZINC [Concomitant]
     Active Substance: ZINC
  7. MAGENSIUM [Concomitant]
  8. UNSPECIFIED PROBIOTIC [Concomitant]

REACTIONS (1)
  - Taste disorder [Unknown]

NARRATIVE: CASE EVENT DATE: 20201227
